FAERS Safety Report 10177343 (Version 3)
Quarter: 2016Q3

REPORT INFORMATION
  Report Type: Spontaneous
  Country: US (occurrence: US)
  Receive Date: 20140515
  Receipt Date: 20160701
  Transmission Date: 20161108
  Serious: No
  Sender: FDA-Public Use
  Company Number: US-PFIZER INC-2014131826

PATIENT
  Age: 67 Year
  Sex: Female
  Weight: 77 kg

DRUGS (8)
  1. BOSULIF [Suspect]
     Active Substance: BOSUTINIB MONOHYDRATE
     Indication: LEUKAEMIA
     Dosage: 500 MG, DAILY
     Route: 048
     Dates: start: 20140426
  2. GABAPENTIN. [Concomitant]
     Active Substance: GABAPENTIN
     Indication: PAIN IN EXTREMITY
     Dosage: 200 MG, 1X/DAY (100 MG, TWO AT NIGHT)
  3. GABAPENTIN. [Concomitant]
     Active Substance: GABAPENTIN
     Indication: ANXIETY
  4. PANTOPRAZOLE [Concomitant]
     Active Substance: PANTOPRAZOLE SODIUM
     Indication: GASTROOESOPHAGEAL REFLUX DISEASE
  5. HYDROCHLOROTHIAZIDE. [Concomitant]
     Active Substance: HYDROCHLOROTHIAZIDE
     Indication: HYPERTENSION
     Dosage: 25 MG, 1X/DAY
  6. PANTOPRAZOLE [Concomitant]
     Active Substance: PANTOPRAZOLE SODIUM
     Indication: HERNIA
     Dosage: 40 MG, 1X/DAY
  7. FIBER [Concomitant]
     Active Substance: PSYLLIUM HUSK
     Indication: CONSTIPATION
     Dosage: UNK, 1X/DAY
  8. BOSULIF [Suspect]
     Active Substance: BOSUTINIB MONOHYDRATE
     Indication: CHRONIC MYELOID LEUKAEMIA
     Dosage: 500 MG, 1X/DAY
     Route: 048
     Dates: end: 20160319

REACTIONS (5)
  - Diarrhoea [Recovering/Resolving]
  - Joint injury [Not Recovered/Not Resolved]
  - Musculoskeletal pain [Recovering/Resolving]
  - Body surface area decreased [Unknown]
  - Vomiting [Not Recovered/Not Resolved]
